FAERS Safety Report 17558830 (Version 2)
Quarter: 2020Q2

REPORT INFORMATION
  Report Type: Spontaneous
  Country: US (occurrence: US)
  Receive Date: 20200318
  Receipt Date: 20200403
  Transmission Date: 20200713
  Serious: No
  Sender: FDA-Public Use
  Company Number: US-CELGENEUS-USA-20200304990

PATIENT
  Age: 53 Year
  Sex: Female
  Weight: 71.73 kg

DRUGS (9)
  1. THALOMID [Suspect]
     Active Substance: THALIDOMIDE
     Dosage: 100 MILLIGRAM
     Route: 048
     Dates: start: 202002
  2. THALOMID [Suspect]
     Active Substance: THALIDOMIDE
     Dosage: 350-300 MILLIGRAM
     Route: 048
     Dates: start: 201707
  3. THALOMID [Suspect]
     Active Substance: THALIDOMIDE
     Dosage: 100-400 MILLIGRAM
     Route: 048
     Dates: start: 201506
  4. THALOMID [Suspect]
     Active Substance: THALIDOMIDE
     Indication: PLASMA CELL MYELOMA RECURRENT
     Dosage: 100 MILLIGRAM
     Route: 048
     Dates: start: 2011
  5. THALOMID [Suspect]
     Active Substance: THALIDOMIDE
     Indication: LEPROSY
     Dosage: 100 MILLIGRAM
     Route: 048
     Dates: start: 201201
  6. THALOMID [Suspect]
     Active Substance: THALIDOMIDE
     Dosage: 300-100 MILLIGRAM
     Route: 048
     Dates: start: 201206
  7. THALOMID [Suspect]
     Active Substance: THALIDOMIDE
     Dosage: 250-200 MILLIGRAM
     Route: 048
     Dates: start: 201905
  8. THALOMID [Suspect]
     Active Substance: THALIDOMIDE
     Dosage: 400-300 MILLIGRAM
     Route: 048
     Dates: start: 201403
  9. THALOMID [Suspect]
     Active Substance: THALIDOMIDE
     Dosage: 150 MILLIGRAM
     Route: 048
     Dates: start: 201911

REACTIONS (2)
  - Red blood cell abnormality [Recovering/Resolving]
  - Blood iron increased [Recovering/Resolving]

NARRATIVE: CASE EVENT DATE: 20200309
